FAERS Safety Report 8185189-3 (Version None)
Quarter: 2012Q1

REPORT INFORMATION
  Report Type: 
  Country: None (occurrence: None)
  Receive Date: 20120305
  Receipt Date: 20120222
  Transmission Date: 20120608
  Serious: Yes (Hospitalization, Other)
  Sender: FDA-Public Use
  Company Number: PHHY2011FR19905

PATIENT
  Sex: Female
  Weight: 76 kg

DRUGS (9)
  1. EVEROLIMUS [Suspect]
     Dosage: 5 MG, DAILY
  2. DILTIAZEM HCL [Concomitant]
     Indication: HYPERTENSION
     Dosage: 300 MG, DAILY
  3. ASCORBIC ACID [Concomitant]
  4. EVEROLIMUS [Suspect]
     Indication: RENAL CANCER METASTATIC
     Dosage: 10 MG, DAILY
     Dates: start: 20101123
  5. HYPERIUM [Concomitant]
     Dosage: 1 MG, DAILY
  6. LEVOTHYROXINE SODIUM [Concomitant]
     Indication: HYPOTHYROIDISM
     Dosage: 62.5 MG, UNK
     Dates: start: 20091001
  7. RED BLOOD CELLS, CONCENTRATED [Concomitant]
  8. LEVOTHYROXINE SODIUM [Concomitant]
     Dosage: 100 UG, UNK
  9. HYPERIUM [Concomitant]
     Dosage: 2 MG, UNK

REACTIONS (3)
  - HYPOMAGNESAEMIA [None]
  - ANAEMIA [None]
  - NEOPLASM MALIGNANT [None]
